FAERS Safety Report 6978000-7 (Version None)
Quarter: 2010Q3

REPORT INFORMATION
  Report Type: 
  Country: None (occurrence: None)
  Receive Date: 20100913
  Receipt Date: 20100901
  Transmission Date: 20110219
  Serious: Yes (Other)
  Sender: FDA-Public Use
  Company Number: CA-PFIZER INC-2010110288

PATIENT
  Age: 72 Year
  Sex: Male

DRUGS (7)
  1. DOXYCYCLINE HYCLATE [Suspect]
  2. LOVASTATIN [Suspect]
  3. DANAZOL [Suspect]
  4. ATENOLOL [Suspect]
  5. ACETYLSALICYLIC ACID [Suspect]
  6. DIPYRIDAMOLE [Suspect]
  7. PREDNISONE [Suspect]

REACTIONS (2)
  - DRUG INTERACTION [None]
  - RHABDOMYOLYSIS [None]
